FAERS Safety Report 15328160 (Version 2)
Quarter: 2018Q3

REPORT INFORMATION
  Report Type: Report from Study
  Country: None (occurrence: US)
  Receive Date: 20180828
  Receipt Date: 20180913
  Transmission Date: 20181010
  Serious: Yes (Hospitalization)
  Sender: FDA-Public Use
  Company Number: US-ABBVIE-18K-163-2465122-00

PATIENT
  Age: 21 Year
  Sex: Male
  Weight: 3.11 kg

DRUGS (1)
  1. HUMIRA [Suspect]
     Active Substance: ADALIMUMAB
     Indication: CROHN^S DISEASE
     Route: 058
     Dates: start: 201801, end: 201807

REACTIONS (7)
  - Crohn^s disease [Not Recovered/Not Resolved]
  - Perirectal abscess [Recovered/Resolved]
  - Fistula discharge [Recovered/Resolved]
  - Intestinal fistula infection [Recovering/Resolving]
  - Drug specific antibody [Not Recovered/Not Resolved]
  - Catheter site thrombosis [Unknown]
  - Drug ineffective [Unknown]

NARRATIVE: CASE EVENT DATE: 2018
